FAERS Safety Report 4906307-3 (Version None)
Quarter: 2006Q1

REPORT INFORMATION
  Report Type: 
  Country: None (occurrence: None)
  Receive Date: 20060209
  Receipt Date: 20060119
  Transmission Date: 20060701
  Serious: Yes (Other)
  Sender: FDA-Public Use
  Company Number: PHMT2006CA00537

PATIENT
  Age: 79 Year
  Sex: Female

DRUGS (9)
  1. DIOVAN [Suspect]
     Indication: HYPERTENSION
     Dosage: 80 MG, QD
     Route: 048
     Dates: start: 20050501, end: 20060101
  2. PANTOLOC ^SOLVAY^ [Concomitant]
  3. CALCIUM WITH VITAMIN D [Concomitant]
  4. AMLODIPINE BESYLATE [Concomitant]
  5. DOCUSATE [Concomitant]
  6. SENNA [Concomitant]
  7. PAROXETINE HYDROCHLORIDE [Concomitant]
  8. OXYCONTIN [Concomitant]
  9. TEMAZEPAM [Concomitant]

REACTIONS (2)
  - HYPERTENSION [None]
  - MEDICATION RESIDUE [None]
